FAERS Safety Report 8517512-1 (Version None)
Quarter: 2012Q3

REPORT INFORMATION
  Report Type: 
  Country: None (occurrence: None)
  Receive Date: 20120718
  Receipt Date: 20070226
  Transmission Date: 20120928
  Serious: Yes (Other)
  Sender: FDA-Public Use
  Company Number: CO-PFIZER INC-2012172293

PATIENT
  Age: 62 Year
  Sex: Female

DRUGS (4)
  1. ACURETIC [Suspect]
     Indication: HYPERTENSION
     Dosage: 20/12.5 MG EVERY 24 HOURS
  2. NIFEDIPINE [Concomitant]
     Dosage: 30 MG EVERY 24 HOURS
  3. LIPITOR [Suspect]
     Indication: DYSLIPIDAEMIA
     Dosage: 10 MG EVERY 24 HOURS
  4. ASPIRIN [Concomitant]
     Dosage: 100 MG EVERY 24 HOURS

REACTIONS (4)
  - FEAR [None]
  - ACUTE MYOCARDIAL INFARCTION [None]
  - DYSPNOEA [None]
  - PALPITATIONS [None]
